FAERS Safety Report 11259581 (Version 1)
Quarter: 2015Q3

REPORT INFORMATION
  Report Type: Spontaneous
  Country: US (occurrence: None)
  Receive Date: 20150709
  Receipt Date: 20150709
  Transmission Date: 20151125
  Serious: Yes (Other)
  Sender: FDA-Public Use
  Company Number: None

PATIENT
  Age: 82 Year
  Sex: Female
  Weight: 61.24 kg

DRUGS (11)
  1. LIDOCAINE PATCH [Suspect]
     Active Substance: LIDOCAINE
     Indication: MUSCLE SPASMS
     Dosage: UP TO 3 PATCHES AT A TIME. 12 HRS ON, 12 HRS OFF?
     Route: 061
     Dates: start: 20150702, end: 20150703
  2. ALLOPURINOL. [Concomitant]
     Active Substance: ALLOPURINOL
  3. OXYCODONE [Concomitant]
     Active Substance: OXYCODONE
  4. ASPIRIN. [Concomitant]
     Active Substance: ASPIRIN
  5. AMLODIPINE [Concomitant]
     Active Substance: AMLODIPINE BESYLATE
  6. LEVOTHYROXINE. [Concomitant]
     Active Substance: LEVOTHYROXINE
  7. MULTIVITAMIN  ONCE DAILY [Concomitant]
  8. DIAZEPAM. [Concomitant]
     Active Substance: DIAZEPAM
  9. AMLODIPINE BESYLATE. [Concomitant]
     Active Substance: AMLODIPINE BESYLATE
  10. DIGOXIN. [Concomitant]
     Active Substance: DIGOXIN
  11. ZOLPIDEM [Concomitant]
     Active Substance: ZOLPIDEM\ZOLPIDEM TARTRATE

REACTIONS (3)
  - Application site erythema [None]
  - Application site inflammation [None]
  - Drug ineffective [None]

NARRATIVE: CASE EVENT DATE: 20150703
